FAERS Safety Report 5454308-1 (Version None)
Quarter: 2007Q3

REPORT INFORMATION
  Report Type: 
  Country: None (occurrence: None)
  Receive Date: 20070917
  Receipt Date: 20060803
  Transmission Date: 20080115
  Serious: Yes (Hospitalization)
  Sender: FDA-Public Use
  Company Number: US-ASTRAZENECA-2006UW15602

PATIENT
  Age: 11 Year
  Sex: Male

DRUGS (7)
  1. SEROQUEL [Suspect]
     Route: 048
     Dates: start: 20051031
  2. ESKLITHA ZR 450 [Concomitant]
  3. CLONIDINE [Concomitant]
  4. TRILEPTAL [Concomitant]
  5. ABILIFY [Concomitant]
  6. CONCERTA [Concomitant]
  7. TRAZODONE HCL [Concomitant]

REACTIONS (2)
  - DYSKINESIA [None]
  - DYSTONIA [None]
